FAERS Safety Report 20164482 (Version 2)
Quarter: 2022Q1

REPORT INFORMATION
  Report Type: Spontaneous
  Country: NL (occurrence: NL)
  Receive Date: 20211209
  Receipt Date: 20220105
  Transmission Date: 20220423
  Serious: Yes (Hospitalization, Other)
  Sender: FDA-Public Use
  Company Number: None

PATIENT
  Age: 54 Year
  Sex: Female
  Weight: 59 kg

DRUGS (8)
  1. METHOTREXATE [Suspect]
     Active Substance: METHOTREXATE
     Indication: Systemic lupus erythematosus
     Dosage: 1X WEEKLY 7.5 MG
     Dates: start: 202006, end: 20210602
  2. JANSSEN COVID-19 VACCINE [Suspect]
     Active Substance: AD26.COV2.S
     Indication: COVID-19 immunisation
     Dates: start: 20210515
  3. PAROXETINE [Suspect]
     Active Substance: PAROXETINE
     Indication: Sleep disorder
     Dosage: 10 MG
     Dates: end: 202106
  4. OMEPRAZOLE [Concomitant]
     Active Substance: OMEPRAZOLE
     Dosage: GASTRO-RESISTANT TABLET, 40 MG (MILLIGRAMS)
  5. MYCOPHENOLIC ACID [Concomitant]
     Active Substance: MYCOPHENOLIC ACID
     Dosage: GASTRO-RESISTANT TABLET, 360 MG (MILLIGRAMS)
  6. VITAMIN K [Concomitant]
     Active Substance: PHYTONADIONE
     Dosage: LIQUID NUTRITION WITH O.A. VITAMIN K / NUTRIDRINK BANANA FLAVOR,
  7. SULFAMETHOXAZOLE\TRIMETHOPRIM [Concomitant]
     Active Substance: SULFAMETHOXAZOLE\TRIMETHOPRIM
     Dosage: TABLET, 80/400 MG (MILLIGRAM)
  8. FOLIC ACID [Concomitant]
     Active Substance: FOLIC ACID

REACTIONS (24)
  - Malaise [Recovering/Resolving]
  - Myalgia [Recovering/Resolving]
  - Clostridium bacteraemia [Recovering/Resolving]
  - Chills [Recovering/Resolving]
  - Myositis [Recovering/Resolving]
  - Nausea [Recovered/Resolved]
  - Arthralgia [Recovering/Resolving]
  - Fatigue [Recovering/Resolving]
  - Diarrhoea [Recovering/Resolving]
  - Pneumonia [Recovering/Resolving]
  - Gastric ulcer [Recovering/Resolving]
  - Pyrexia [Recovering/Resolving]
  - Axillary pain [Recovering/Resolving]
  - Rash papular [Recovering/Resolving]
  - Cough [Recovering/Resolving]
  - Hepatic function abnormal [Recovering/Resolving]
  - Abdominal pain [Recovering/Resolving]
  - Leukopenia [Recovering/Resolving]
  - Inappropriate antidiuretic hormone secretion [Recovering/Resolving]
  - Oropharyngeal pain [Recovering/Resolving]
  - Oral candidiasis [Recovering/Resolving]
  - Hyponatraemia [Recovered/Resolved]
  - Lymphadenitis [Recovering/Resolving]
  - Systemic lupus erythematosus [Recovering/Resolving]

NARRATIVE: CASE EVENT DATE: 20210524
